FAERS Safety Report 7118847-X (Version None)
Quarter: 2010Q4

REPORT INFORMATION
  Report Type: 
  Country: None (occurrence: None)
  Receive Date: 20101123
  Receipt Date: 20100921
  Transmission Date: 20110411
  Serious: No
  Sender: FDA-Public Use
  Company Number: US-KINGPHARMUSA00001-K201001193

PATIENT
  Age: 74 Year
  Sex: Female
  Weight: 81.633 kg

DRUGS (8)
  1. FLECTOR [Suspect]
     Indication: PAIN
     Dosage: 1/2 PATCH EVERY 12 HOURS
     Route: 061
     Dates: start: 20100920, end: 20100921
  2. FLECTOR [Suspect]
     Indication: SCIATICA
  3. ASPIRIN [Concomitant]
     Indication: TRANSIENT ISCHAEMIC ATTACK
     Dosage: UNK, QD
  4. OXYCODONE HCL [Concomitant]
     Indication: PAIN
  5. SOMA [Concomitant]
     Indication: MUSCLE SPASMS
  6. PRILOSEC [Concomitant]
     Indication: GASTROOESOPHAGEAL REFLUX DISEASE
  7. DIAZEPAM [Concomitant]
     Indication: ANXIETY
  8. ANTIHYPERTENSIVES [Concomitant]

REACTIONS (2)
  - ABDOMINAL DISCOMFORT [None]
  - DYSPNOEA [None]
